FAERS Safety Report 15592985 (Version 3)
Quarter: 2019Q1

REPORT INFORMATION
  Report Type: Report from Study
  Country: ES (occurrence: ES)
  Receive Date: 20181107
  Receipt Date: 20190204
  Transmission Date: 20190417
  Serious: Yes (Hospitalization)
  Sender: FDA-Public Use
  Company Number: ES-UCBSA-2018006781

PATIENT
  Sex: Female

DRUGS (2)
  1. ROTIGOTINE [Suspect]
     Active Substance: ROTIGOTINE
     Dosage: 6 MG, ONCE DAILY (QD)
     Dates: start: 2018
  2. ROTIGOTINE [Suspect]
     Active Substance: ROTIGOTINE
     Indication: PARKINSON^S DISEASE
     Dosage: 8 MG, ONCE DAILY (QD)

REACTIONS (10)
  - Cardiac failure [Recovering/Resolving]
  - Nervousness [Recovered/Resolved]
  - Tremor [Recovered/Resolved with Sequelae]
  - Hallucination, visual [Not Recovered/Not Resolved]
  - Sleep talking [Not Recovered/Not Resolved]
  - Insomnia [Unknown]
  - Nasopharyngitis [Recovering/Resolving]
  - Abnormal dreams [Not Recovered/Not Resolved]
  - Hallucination, auditory [Not Recovered/Not Resolved]
  - Nightmare [Not Recovered/Not Resolved]

NARRATIVE: CASE EVENT DATE: 2018
